FAERS Safety Report 5061537-8 (Version None)
Quarter: 2006Q3

REPORT INFORMATION
  Report Type: 
  Country: None (occurrence: None)
  Receive Date: 20060721
  Receipt Date: 20060707
  Transmission Date: 20061208
  Serious: Yes (Other)
  Sender: FDA-Public Use
  Company Number: US200607001275

PATIENT
  Sex: Female

DRUGS (5)
  1. HUMALOG MIX 75/25 [Suspect]
     Indication: DIABETES MELLITUS
     Dates: start: 19960101
  2. HUMALOG MIX (HUMALOG MIX) [Concomitant]
  3. GLUCOTROL [Concomitant]
  4. COZAAR [Concomitant]
  5. UROCIT-K (POTASSIUM CITRATE) [Concomitant]

REACTIONS (3)
  - DRUG HYPERSENSITIVITY [None]
  - LYMPHOMA [None]
  - URTICARIA GENERALISED [None]
